FAERS Safety Report 13891889 (Version 1)
Quarter: 2017Q3

REPORT INFORMATION
  Report Type: Spontaneous
  Country: US (occurrence: US)
  Receive Date: 20170822
  Receipt Date: 20170822
  Transmission Date: 20171127
  Serious: No
  Sender: FDA-Public Use
  Company Number: US-PFIZER INC-2017363855

PATIENT
  Age: 75 Year
  Sex: Male
  Weight: 99.34 kg

DRUGS (1)
  1. GABAPENTIN. [Suspect]
     Active Substance: GABAPENTIN
     Dosage: 600 MG, 4X/DAY

REACTIONS (2)
  - Dysstasia [Unknown]
  - Abnormal dreams [Unknown]
